FAERS Safety Report 23653407 (Version 1)
Quarter: 2024Q1

REPORT INFORMATION
  Report Type: Spontaneous
  Country: CA (occurrence: CA)
  Receive Date: 20240320
  Receipt Date: 20240320
  Transmission Date: 20240410
  Serious: No
  Sender: FDA-Public Use
  Company Number: CA-PFIZER INC-202400053125

PATIENT
  Age: 9 Year
  Sex: Female

DRUGS (1)
  1. GENOTROPIN [Suspect]
     Active Substance: SOMATROPIN
     Indication: Small for dates baby
     Dosage: 1 DF, DAILY (1.2 OR 1.1 MG, PATIENT^S MOTHER UNSURE)
     Route: 058
     Dates: start: 202402

REACTIONS (1)
  - Device difficult to use [Unknown]
